FAERS Safety Report 11736635 (Version 1)
Quarter: 2015Q4

REPORT INFORMATION
  Report Type: Spontaneous
  Country: US (occurrence: US)
  Receive Date: 20151110
  Receipt Date: 20151110
  Transmission Date: 20160304
  Serious: No
  Sender: FDA-Public Use
  Company Number: US-ELI_LILLY_AND_COMPANY-US201206006976

PATIENT
  Age: 65 Year
  Sex: Female

DRUGS (1)
  1. FORTEO [Suspect]
     Active Substance: TERIPARATIDE
     Indication: OSTEOPOROSIS
     Dosage: 20 UG, QD
     Dates: start: 20120605

REACTIONS (8)
  - Hypersomnia [Unknown]
  - Nasopharyngitis [Unknown]
  - Constipation [Unknown]
  - Headache [Unknown]
  - Pain in jaw [Unknown]
  - Ear pain [Unknown]
  - Toothache [Unknown]
  - Fatigue [Unknown]

NARRATIVE: CASE EVENT DATE: 20120611
